FAERS Safety Report 6331970-2 (Version None)
Quarter: 2009Q3

REPORT INFORMATION
  Report Type: 
  Country: None (occurrence: None)
  Receive Date: 20090828
  Receipt Date: 20090819
  Transmission Date: 20100115
  Serious: Yes (Death, Hospitalization)
  Sender: FDA-Public Use
  Company Number: US-BIOGENIDEC-2007BI015521

PATIENT
  Age: 66 Year
  Sex: Male

DRUGS (2)
  1. AVONEX [Suspect]
     Indication: MULTIPLE SCLEROSIS
     Route: 030
     Dates: start: 20041001, end: 20070713
  2. AVONEX [Suspect]
     Route: 030
     Dates: start: 20000218

REACTIONS (3)
  - BLADDER CANCER [None]
  - POST PROCEDURAL COMPLICATION [None]
  - VOMITING [None]
